FAERS Safety Report 7786533-9 (Version None)
Quarter: 2011Q3

REPORT INFORMATION
  Report Type: 
  Country: None (occurrence: None)
  Receive Date: 20110929
  Receipt Date: 20110926
  Transmission Date: 20111222
  Serious: Yes (Hospitalization)
  Sender: FDA-Public Use
  Company Number: US-GLAXOSMITHKLINE-A0946009A

PATIENT
  Age: 68 Year
  Sex: Female

DRUGS (17)
  1. PREDNISONE [Concomitant]
  2. ALBUTEROL [Concomitant]
  3. TRAVATAN [Concomitant]
  4. RANITIDINE [Concomitant]
  5. ALPRAZOLAM [Concomitant]
  6. NASONEX [Concomitant]
  7. LEVOTHYROXINE SODIUM [Concomitant]
  8. FEXOFENADINE [Concomitant]
  9. VITAMIN B-12 [Concomitant]
  10. LOTEMAX [Concomitant]
  11. MURO [Concomitant]
  12. SPIRIVA [Concomitant]
  13. TIMOLOL MALEATE [Concomitant]
  14. REFRESH [Concomitant]
  15. ALBUTEROL INHALER [Concomitant]
  16. ADVAIR DISKUS 100/50 [Suspect]
     Indication: ASTHMA
     Dosage: 1PUFF TWICE PER DAY
     Route: 055
     Dates: start: 20060101
  17. OXYGEN [Concomitant]

REACTIONS (9)
  - LUNG ABSCESS [None]
  - DYSPNOEA [None]
  - FATIGUE [None]
  - CANDIDIASIS [None]
  - PNEUMONIA [None]
  - APHONIA [None]
  - OROPHARYNGEAL PAIN [None]
  - MENTAL IMPAIRMENT [None]
  - DYSPHONIA [None]
